FAERS Safety Report 8152168-1 (Version None)
Quarter: 2012Q1

REPORT INFORMATION
  Report Type: 
  Country: None (occurrence: None)
  Receive Date: 20120221
  Receipt Date: 20120209
  Transmission Date: 20120608
  Serious: Yes (Other)
  Sender: FDA-Public Use
  Company Number: GB-PFIZER INC-2012035429

PATIENT
  Age: 71 Year
  Sex: Male
  Weight: 62 kg

DRUGS (12)
  1. OMEPRAZOLE [Concomitant]
     Dosage: 40 MG, 1X/DAY
     Route: 048
     Dates: start: 20050101
  2. LANSOPRAZOLE [Concomitant]
     Dosage: 40 MG, UNK
     Route: 048
     Dates: start: 20110221
  3. BISOPROLOL [Concomitant]
     Dosage: 2.5 MG, UNK
     Route: 048
     Dates: start: 20111122
  4. LACIDIPINE [Concomitant]
     Dosage: 2 MG, UNK
     Route: 048
     Dates: start: 20050101
  5. BENDROFLUMETHIAZIDE [Concomitant]
     Dosage: UNK
  6. CISPLATIN [Suspect]
     Dosage: 320 MG, UNK
     Route: 042
     Dates: start: 20111018
  7. BEVACIZUMAB [Suspect]
     Indication: GASTRIC CANCER
     Dosage: 492 MG, UNK
     Route: 042
     Dates: start: 20110221
  8. CAPECITABINE [Suspect]
     Indication: GASTRIC CANCER
     Dosage: 1600 MG OR 2150 MG
     Route: 048
     Dates: start: 20110221
  9. RAMIPRIL [Concomitant]
     Dosage: 10 MG, UNK
     Route: 048
     Dates: start: 20050101
  10. CISPLATIN [Suspect]
     Indication: GASTRIC CANCER
     Dosage: 100 MG, UNK
     Route: 042
     Dates: start: 20110221
  11. EPIRUBICIN HYDROCHLORIDE [Suspect]
     Indication: GASTRIC CANCER
     Dosage: 62 MG, UNK
     Route: 042
     Dates: start: 20110221
  12. CAPECITABINE [Suspect]
     Dosage: UNK
     Route: 048
     Dates: start: 20111107

REACTIONS (1)
  - HYPERTENSION [None]
